FAERS Safety Report 13266933 (Version 2)
Quarter: 2017Q2

REPORT INFORMATION
  Report Type: Spontaneous
  Country: US (occurrence: US)
  Receive Date: 20170224
  Receipt Date: 20170407
  Transmission Date: 20170830
  Serious: Yes (Life-Threatening, Hospitalization, Other)
  Sender: FDA-Public Use
  Company Number: US-ROCHE-1897913

PATIENT
  Age: 34 Year
  Sex: Female
  Weight: 53.57 kg

DRUGS (2)
  1. TAMIFLU [Suspect]
     Active Substance: OSELTAMIVIR PHOSPHATE
     Indication: INFLUENZA
     Dosage: TOOK ONLY 1 DOSE ;ONGOING: NO
     Route: 048
     Dates: start: 20170214, end: 20170214
  2. VYVANSE [Concomitant]
     Active Substance: LISDEXAMFETAMINE DIMESYLATE
     Dosage: ON THE MEDICATION FOR ABOUT 4 - 5 YEARS ;ONGOING: YES
     Route: 065

REACTIONS (4)
  - Tachycardia [Recovered/Resolved with Sequelae]
  - Heart rate increased [Recovered/Resolved]
  - Ventricular arrhythmia [Recovered/Resolved]
  - Dizziness [Recovered/Resolved]

NARRATIVE: CASE EVENT DATE: 20170214
